FAERS Safety Report 8211258-5 (Version None)
Quarter: 2012Q1

REPORT INFORMATION
  Report Type: 
  Country: None (occurrence: None)
  Receive Date: 20120228
  Receipt Date: 20110831
  Transmission Date: 20120608
  Serious: Yes (Other)
  Sender: FDA-Public Use
  Company Number: RB-32019-2011

PATIENT
  Sex: Female

DRUGS (3)
  1. SUBOXONE [Suspect]
     Indication: DRUG DEPENDENCE
     Dosage: (16 MG TRANSPLACENTAL)
     Route: 064
     Dates: start: 20100101, end: 20101111
  2. SUBOXONE [Suspect]
     Indication: DEPENDENCE
     Dosage: (16 MG TRANSPLACENTAL)
     Route: 064
     Dates: start: 20101112, end: 20110628
  3. BENZODIAZEPINE DERIVATIVES (NONE) [Suspect]
     Indication: PRODUCT USED FOR UNKNOWN INDICATION

REACTIONS (2)
  - DRUG WITHDRAWAL SYNDROME NEONATAL [None]
  - FOETAL EXPOSURE DURING PREGNANCY [None]
